FAERS Safety Report 6381050-5 (Version None)
Quarter: 2009Q3

REPORT INFORMATION
  Report Type: 
  Country: None (occurrence: None)
  Receive Date: 20090929
  Receipt Date: 20090917
  Transmission Date: 20100115
  Serious: Yes (Death)
  Sender: FDA-Public Use
  Company Number: JP-PFIZER INC-2009242465

PATIENT
  Age: 82 Year

DRUGS (1)
  1. ZYVOX [Suspect]
     Dosage: UNK
     Route: 042

REACTIONS (1)
  - RENAL TUBULAR NECROSIS [None]
